FAERS Safety Report 23995617 (Version 4)
Quarter: 2024Q3

REPORT INFORMATION
  Report Type: Report from Study
  Country: US (occurrence: US)
  Receive Date: 20240620
  Receipt Date: 20240920
  Transmission Date: 20241017
  Serious: Yes (Other)
  Sender: BAYER
  Company Number: US-BAYER-2024A087091

PATIENT
  Age: 37 Year
  Sex: Male

DRUGS (4)
  1. STIVARGA [Suspect]
     Active Substance: REGORAFENIB MONOHYDRATE
     Indication: Osteosarcoma
     Dosage: 160 MG, QD, ~160MG BY MOUTH DAILY FOR THE FIRST 21 DAYS OF A 28 DAY CYCLE
     Route: 048
     Dates: start: 20240604
  2. STIVARGA [Suspect]
     Active Substance: REGORAFENIB MONOHYDRATE
     Indication: Osteosarcoma
     Dosage: 120 MG, QD
     Route: 048
  3. STIVARGA [Suspect]
     Active Substance: REGORAFENIB MONOHYDRATE
     Indication: Osteosarcoma
     Dosage: 160 MG, QD
     Route: 048
  4. STIVARGA [Suspect]
     Active Substance: REGORAFENIB MONOHYDRATE
     Indication: Osteosarcoma
     Dosage: 80 MG, QD

REACTIONS (9)
  - Neuropathy peripheral [Not Recovered/Not Resolved]
  - Blood potassium decreased [Not Recovered/Not Resolved]
  - Lung neoplasm [Unknown]
  - Blister [Recovering/Resolving]
  - Blood sodium decreased [Not Recovered/Not Resolved]
  - Gait disturbance [Not Recovered/Not Resolved]
  - Rash [Recovering/Resolving]
  - Off label use [None]
  - Drug ineffective [None]

NARRATIVE: CASE EVENT DATE: 20240604
